FAERS Safety Report 23358321 (Version 1)
Quarter: 2024Q1

REPORT INFORMATION
  Report Type: Spontaneous
  Country: US (occurrence: US)
  Receive Date: 20240102
  Receipt Date: 20240102
  Transmission Date: 20240410
  Serious: No
  Sender: FDA-Public Use
  Company Number: US-009507513-2312USA008563

PATIENT
  Age: 67 Year
  Sex: Male

DRUGS (6)
  1. PRIMAXIN IV [Suspect]
     Active Substance: CILASTATIN SODIUM\IMIPENEM
     Indication: Evidence based treatment
  2. PRIMAXIN IV [Suspect]
     Active Substance: CILASTATIN SODIUM\IMIPENEM
     Indication: Nocardiosis
  3. AMIKACIN [Concomitant]
     Active Substance: AMIKACIN
     Indication: Evidence based treatment
  4. AMIKACIN [Concomitant]
     Active Substance: AMIKACIN
     Indication: Nocardiosis
  5. SULFAMETHOXAZOLE\TRIMETHOPRIM [Concomitant]
     Active Substance: SULFAMETHOXAZOLE\TRIMETHOPRIM
     Indication: Evidence based treatment
  6. MOXIFLOXACIN [Concomitant]
     Active Substance: MOXIFLOXACIN
     Indication: Nocardiosis

REACTIONS (1)
  - Product use in unapproved indication [Unknown]
